FAERS Safety Report 6709345-3 (Version None)
Quarter: 2010Q2

REPORT INFORMATION
  Report Type: 
  Country: None (occurrence: None)
  Receive Date: 20100504
  Receipt Date: 20100427
  Transmission Date: 20101027
  Serious: Yes (Life-Threatening)
  Sender: FDA-Public Use
  Company Number: JP-BAYER-201023710GPV

PATIENT
  Age: 36 Year
  Sex: Male
  Weight: 83 kg

DRUGS (5)
  1. DACARBAZINE [Suspect]
     Indication: HODGKIN'S DISEASE
     Dosage: 100 MG
  2. ADRIAMYCIN PFS [Suspect]
     Indication: HODGKIN'S DISEASE
  3. BLEOMYCIN [Suspect]
     Indication: HODGKIN'S DISEASE
  4. VINBLASTINE SULFATE [Suspect]
     Indication: HODGKIN'S DISEASE
  5. ONDANSETRON [Concomitant]
     Indication: PROPHYLAXIS OF NAUSEA AND VOMITING
     Route: 042

REACTIONS (5)
  - CONVULSION [None]
  - CYTOKINE STORM [None]
  - LOSS OF CONSCIOUSNESS [None]
  - PYREXIA [None]
  - TUMOUR LYSIS SYNDROME [None]
